FAERS Safety Report 6096082-4 (Version None)
Quarter: 2009Q1

REPORT INFORMATION
  Report Type: 
  Country: None (occurrence: None)
  Receive Date: 20090227
  Receipt Date: 20080828
  Transmission Date: 20090719
  Serious: No
  Sender: FDA-Public Use
  Company Number: A0744922A

PATIENT
  Age: 56 Year
  Sex: Female

DRUGS (2)
  1. LAMICTAL [Suspect]
     Indication: BIPOLAR DISORDER
     Dosage: 150MG TWICE PER DAY
     Route: 048
     Dates: end: 20080825
  2. PRISTIQ [Concomitant]

REACTIONS (4)
  - BALANCE DISORDER [None]
  - CRYING [None]
  - EMOTIONAL DISORDER [None]
  - EMOTIONAL DISTRESS [None]
